FAERS Safety Report 21087401 (Version 1)
Quarter: 2022Q3

REPORT INFORMATION
  Report Type: Spontaneous
  Country: US (occurrence: None)
  Receive Date: 20220714
  Receipt Date: 20220714
  Transmission Date: 20221027
  Serious: No
  Sender: FDA-Public Use
  Company Number: None

PATIENT
  Age: 68 Year
  Sex: Male
  Weight: 99.34 kg

DRUGS (1)
  1. NITROFURANTOIN MONOHYDRATE MACROCRYSTALS [Suspect]
     Active Substance: NITROFURANTOIN\NITROFURANTOIN MONOHYDRATE
     Indication: Urinary tract infection
     Dosage: 100 MG BID PO?
     Route: 048
     Dates: start: 20220101, end: 20220114

REACTIONS (10)
  - Dyspnoea [None]
  - Hypervolaemia [None]
  - Abdominal pain upper [None]
  - Abdominal pain upper [None]
  - Alanine aminotransferase increased [None]
  - Aspartate aminotransferase increased [None]
  - Cardiac failure congestive [None]
  - Hepatitis acute [None]
  - Fatigue [None]
  - Hepatotoxicity [None]

NARRATIVE: CASE EVENT DATE: 20220105
